FAERS Safety Report 21385312 (Version 1)
Quarter: 2022Q3

REPORT INFORMATION
  Report Type: Spontaneous
  Country: CA (occurrence: CA)
  Receive Date: 20220928
  Receipt Date: 20220928
  Transmission Date: 20221027
  Serious: Yes (Hospitalization, Other)
  Sender: FDA-Public Use
  Company Number: CA-MLMSERVICE-20220916-3801180-1

PATIENT
  Age: 18 Year
  Sex: Female

DRUGS (4)
  1. ETOPOSIDE [Suspect]
     Active Substance: ETOPOSIDE
     Indication: Acute myeloid leukaemia
     Dosage: RECEIVED 3 CYCLES
  2. DAUNORUBICIN [Suspect]
     Active Substance: DAUNORUBICIN
     Indication: Acute myeloid leukaemia
     Dosage: RECEIVED 3 CYCLES
  3. GEMTUZUMAB OZOGAMICIN [Suspect]
     Active Substance: GEMTUZUMAB OZOGAMICIN
     Indication: Acute myeloid leukaemia
     Dosage: RECEIVED WITH 3RD CYCLE
  4. CYTARABINE [Suspect]
     Active Substance: CYTARABINE
     Indication: Acute myeloid leukaemia
     Dosage: RECEIVED 3 CYCLES

REACTIONS (2)
  - Colitis [Recovered/Resolved]
  - Emotional distress [Recovered/Resolved]
